FAERS Safety Report 8950830 (Version 1)
Quarter: 2012Q4

REPORT INFORMATION
  Report Type: Spontaneous
  Country: US (occurrence: None)
  Receive Date: 20121204
  Receipt Date: 20121204
  Transmission Date: 20130627
  Serious: Yes (Other)
  Sender: FDA-Public Use
  Company Number: None

PATIENT
  Age: 66 Year
  Sex: Male
  Weight: 82.56 kg

DRUGS (1)
  1. LIVALO [Suspect]
     Indication: HIGH CHOLESTEROL
     Dates: start: 20120810, end: 20121015

REACTIONS (2)
  - Myalgia [None]
  - Blood creatine phosphokinase increased [None]
